FAERS Safety Report 10574313 (Version 1)
Quarter: 2014Q4

REPORT INFORMATION
  Report Type: Spontaneous
  Country: GB (occurrence: GB)
  Receive Date: 20141110
  Receipt Date: 20141110
  Transmission Date: 20150529
  Serious: Yes (Other)
  Sender: FDA-Public Use
  Company Number: PHHY2014GB143638

PATIENT
  Age: 55 Year
  Sex: Male

DRUGS (1)
  1. SIMVASTATIN. [Suspect]
     Active Substance: SIMVASTATIN
     Indication: BLOOD CHOLESTEROL INCREASED
     Dosage: 40 OT, UNK
     Route: 048

REACTIONS (5)
  - Quality of life decreased [Unknown]
  - Myalgia [Unknown]
  - Social problem [Unknown]
  - Muscular weakness [Unknown]
  - Impaired work ability [Unknown]
